FAERS Safety Report 19069924 (Version 1)
Quarter: 2021Q1

REPORT INFORMATION
  Report Type: Spontaneous
  Country: IR (occurrence: IR)
  Receive Date: 20210329
  Receipt Date: 20210329
  Transmission Date: 20210420
  Serious: Yes (Other)
  Sender: FDA-Public Use
  Company Number: IR-JUBILANT PHARMA LTD-2021IR000268

PATIENT
  Sex: Female

DRUGS (2)
  1. SODIUM IODIDE I?131. [Suspect]
     Active Substance: SODIUM IODIDE I-131
     Indication: THYROID CANCER
     Dosage: 5550 MBQ
  2. LEVOTHYROXINE. [Concomitant]
     Active Substance: LEVOTHYROXINE
     Indication: POST PROCEDURAL HYPOTHYROIDISM
     Dosage: UNK

REACTIONS (2)
  - Maternal exposure before pregnancy [Unknown]
  - Foetal death [Not Recovered/Not Resolved]
